FAERS Safety Report 8511675-X (Version None)
Quarter: 2012Q3

REPORT INFORMATION
  Report Type: 
  Country: None (occurrence: None)
  Receive Date: 20120716
  Receipt Date: 20120710
  Transmission Date: 20120928
  Serious: Yes (Death)
  Sender: FDA-Public Use
  Company Number: US-SANOFI-AVENTIS-2012SA039475

PATIENT
  Sex: Male

DRUGS (1)
  1. PLAVIX [Suspect]

REACTIONS (1)
  - DEATH [None]
